FAERS Safety Report 25467583 (Version 1)
Quarter: 2025Q2

REPORT INFORMATION
  Report Type: Spontaneous
  Country: US (occurrence: None)
  Receive Date: 20250621
  Receipt Date: 20250621
  Transmission Date: 20250716
  Serious: Yes (Disabling)
  Sender: FDA-CTU
  Company Number: None

PATIENT
  Age: 40 Year
  Sex: Female
  Weight: 83.25 kg

DRUGS (5)
  1. PREDNISONE [Suspect]
     Active Substance: PREDNISONE
     Indication: Deafness
     Dosage: OTHER QUANTITY : 3 TABLET(S);?FREQUENCY : DAILY;?
     Route: 048
     Dates: start: 20250425, end: 20250504
  2. PREDNISONE [Suspect]
     Active Substance: PREDNISONE
     Indication: Exposure to noise
  3. UNSPECIFIED INGREDIENT [Concomitant]
     Active Substance: UNSPECIFIED INGREDIENT
  4. ATIVAN [Concomitant]
     Active Substance: LORAZEPAM
  5. Lexapro 10 mg daily [Concomitant]

REACTIONS (9)
  - Feeling jittery [None]
  - Vision blurred [None]
  - Arthralgia [None]
  - Arthralgia [None]
  - Tinnitus [None]
  - Head discomfort [None]
  - Ear discomfort [None]
  - Eustachian tube dysfunction [None]
  - Hyperacusis [None]

NARRATIVE: CASE EVENT DATE: 20250501
